FAERS Safety Report 8896199 (Version 3)
Quarter: 2013Q3

REPORT INFORMATION
  Report Type: Report from Study
  Country: AR (occurrence: AR)
  Receive Date: 20121108
  Receipt Date: 20130731
  Transmission Date: 20140515
  Serious: Yes (Death, Hospitalization)
  Sender: FDA-Public Use
  Company Number: PHHY2012AR102482

PATIENT
  Age: 77 Year
  Sex: Male

DRUGS (3)
  1. EXFORGE D [Suspect]
     Indication: HYPERTENSION
     Dosage: 1 DF, (VALS 160 MG, AMLO 5 MG, HCTZ 12.5 MG) DAILY
     Route: 048
     Dates: start: 201111
  2. EXFORGE D [Suspect]
     Indication: CHRONIC OBSTRUCTIVE PULMONARY DISEASE
     Dosage: 2 DF, DAILY
     Route: 048
     Dates: start: 2012
  3. EXFORGE D [Suspect]
     Indication: OFF LABEL USE

REACTIONS (4)
  - Chronic obstructive pulmonary disease [Fatal]
  - Dyspnoea [Fatal]
  - Pneumonia [Fatal]
  - Cardio-respiratory arrest [Fatal]
